FAERS Safety Report 23343107 (Version 1)
Quarter: 2023Q4

REPORT INFORMATION
  Report Type: Spontaneous
  Country: TR (occurrence: TR)
  Receive Date: 20231227
  Receipt Date: 20231227
  Transmission Date: 20240110
  Serious: Yes (Hospitalization, Other)
  Sender: FDA-Public Use
  Company Number: TR-GLAXOSMITHKLINE-TR2023GSK179415

PATIENT

DRUGS (1)
  1. FLUTICASONE PROPIONATE\SALMETEROL XINAFOATE [Suspect]
     Active Substance: FLUTICASONE PROPIONATE\SALMETEROL XINAFOATE
     Indication: Asthma
     Dosage: UNK (INTERMITENTLY FOR 2 YEARS)
     Route: 055

REACTIONS (12)
  - Pulmonary cavitation [Recovering/Resolving]
  - Cough [Recovering/Resolving]
  - Haemoptysis [Recovered/Resolved]
  - Dyspnoea [Recovering/Resolving]
  - Rales [Recovering/Resolving]
  - Staphylococcal infection [Recovering/Resolving]
  - Candida infection [Recovering/Resolving]
  - Fungal infection [Recovering/Resolving]
  - Inflammation [Recovering/Resolving]
  - Tuberculosis [Recovered/Resolved]
  - Pulmonary mass [Recovered/Resolved]
  - Respiratory moniliasis [Recovering/Resolving]
